FAERS Safety Report 5198091-6 (Version None)
Quarter: 2006Q4

REPORT INFORMATION
  Report Type: 
  Country: None (occurrence: None)
  Receive Date: 20061229
  Receipt Date: 20061220
  Transmission Date: 20070319
  Serious: Yes (Other)
  Sender: FDA-Public Use
  Company Number: CHPA2006US13238

PATIENT

DRUGS (1)
  1. EXCEDRIN (MIGRAINE) [Suspect]
     Indication: HEADACHE
     Dosage: 3, QD

REACTIONS (2)
  - DRUG ABUSER [None]
  - NO ADVERSE DRUG EFFECT [None]
